FAERS Safety Report 6077203-6 (Version None)
Quarter: 2009Q1

REPORT INFORMATION
  Report Type: 
  Country: None (occurrence: None)
  Receive Date: 20090213
  Receipt Date: 20090115
  Transmission Date: 20090719
  Serious: Yes (Hospitalization)
  Sender: FDA-Public Use
  Company Number: FR-AVENTIS-200910424FR

PATIENT
  Age: 61 Year
  Sex: Male

DRUGS (9)
  1. RIFADIN [Suspect]
     Indication: MENINGITIS
     Route: 048
     Dates: start: 20080625, end: 20080702
  2. PIRILENE [Suspect]
     Indication: MENINGITIS
     Route: 048
     Dates: start: 20080625, end: 20080702
  3. LOVENOX [Suspect]
     Indication: DRUG USE FOR UNKNOWN INDICATION
     Route: 058
     Dates: start: 20080617, end: 20080702
  4. RIMIFON [Suspect]
     Indication: MENINGITIS
     Route: 048
     Dates: start: 20080625, end: 20080702
  5. MYAMBUTOL [Suspect]
     Indication: MENINGITIS
     Route: 048
     Dates: start: 20080625, end: 20080702
  6. CLAMOXYL                           /00249601/ [Suspect]
     Indication: MENINGITIS
     Route: 042
     Dates: start: 20080509, end: 20080701
  7. NICOBION [Suspect]
     Indication: DRUG USE FOR UNKNOWN INDICATION
     Route: 048
     Dates: start: 20080630, end: 20080702
  8. VITAMIN B1 AND B6 [Suspect]
     Indication: DRUG USE FOR UNKNOWN INDICATION
     Route: 048
     Dates: start: 20080629, end: 20080702
  9. INIPOMP                            /01263201/ [Concomitant]
     Indication: DRUG USE FOR UNKNOWN INDICATION
     Route: 048
     Dates: start: 20080617, end: 20080702

REACTIONS (1)
  - NEUTROPENIA [None]
